FAERS Safety Report 5365032-8 (Version None)
Quarter: 2007Q2

REPORT INFORMATION
  Report Type: 
  Country: None (occurrence: None)
  Receive Date: 20070621
  Receipt Date: 20070613
  Transmission Date: 20071010
  Serious: Yes (Hospitalization)
  Sender: FDA-Public Use
  Company Number: US-JNJFOC-20070603695

PATIENT
  Sex: Male

DRUGS (7)
  1. RISPERDAL [Suspect]
     Route: 048
  2. RISPERDAL [Suspect]
     Route: 048
  3. RISPERDAL [Suspect]
     Indication: SCHIZOPHRENIA
     Route: 048
  4. GRAPEFRUIT JUICE [Suspect]
     Indication: DRUG USE FOR UNKNOWN INDICATION
  5. VALIUM [Concomitant]
  6. DALMANE [Concomitant]
  7. TOPROL-XL [Concomitant]

REACTIONS (4)
  - FOOD INTERACTION [None]
  - HALLUCINATION, AUDITORY [None]
  - PARANOIA [None]
  - PSYCHOTIC DISORDER [None]
